FAERS Safety Report 6225213-8 (Version None)
Quarter: 2009Q2

REPORT INFORMATION
  Report Type: 
  Country: None (occurrence: None)
  Receive Date: 20090612
  Receipt Date: 20090413
  Transmission Date: 20091009
  Serious: No
  Sender: FDA-Public Use
  Company Number: US-ABBOTT-09P-163-0567951-00

PATIENT
  Sex: Female
  Weight: 85.352 kg

DRUGS (14)
  1. HUMIRA [Suspect]
     Indication: RHEUMATOID ARTHRITIS
     Route: 058
     Dates: start: 20090101
  2. TREXIMATE [Concomitant]
     Indication: MIGRAINE
  3. TOPAMAX [Concomitant]
     Indication: DRUG USE FOR UNKNOWN INDICATION
  4. NORCO [Concomitant]
     Indication: DRUG USE FOR UNKNOWN INDICATION
  5. CYMBALTA [Concomitant]
     Indication: DRUG USE FOR UNKNOWN INDICATION
  6. ESTRADIOL [Concomitant]
     Indication: DRUG USE FOR UNKNOWN INDICATION
  7. ZEGRID [Concomitant]
     Indication: DRUG USE FOR UNKNOWN INDICATION
  8. SIMVASTATIN [Concomitant]
     Indication: DRUG USE FOR UNKNOWN INDICATION
  9. ALLEGRA [Concomitant]
     Indication: DRUG USE FOR UNKNOWN INDICATION
  10. MOBIC [Concomitant]
     Indication: DRUG USE FOR UNKNOWN INDICATION
  11. SINGULAIR [Concomitant]
     Indication: DRUG USE FOR UNKNOWN INDICATION
  12. COMBIVENT [Concomitant]
     Indication: DRUG USE FOR UNKNOWN INDICATION
  13. ADVAIR HFA [Concomitant]
     Indication: DRUG USE FOR UNKNOWN INDICATION
  14. ASTELIN [Concomitant]
     Indication: DRUG USE FOR UNKNOWN INDICATION

REACTIONS (2)
  - INSOMNIA [None]
  - WEIGHT INCREASED [None]
